FAERS Safety Report 4985512-4 (Version None)
Quarter: 2006Q2

REPORT INFORMATION
  Report Type: 
  Country: None (occurrence: None)
  Receive Date: 20060428
  Receipt Date: 20050718
  Transmission Date: 20061013
  Serious: No
  Sender: FDA-Public Use
  Company Number: US-GLAXOSMITHKLINE-A0566704A

PATIENT
  Sex: Female

DRUGS (3)
  1. FLOVENT [Suspect]
     Indication: ASTHMA
     Dosage: 660MCG TWICE PER DAY
     Route: 055
     Dates: start: 19970301
  2. ATROVENT [Concomitant]
  3. ALBUTEROL SULFATE AUTOHALER [Concomitant]

REACTIONS (3)
  - MUSCULAR WEAKNESS [None]
  - ORAL CANDIDIASIS [None]
  - OSTEOPOROSIS [None]
